FAERS Safety Report 5095519-7 (Version None)
Quarter: 2006Q3

REPORT INFORMATION
  Report Type: 
  Country: None (occurrence: None)
  Receive Date: 20060831
  Receipt Date: 20060831
  Transmission Date: 20061208
  Serious: Yes (Life-Threatening, Hospitalization)
  Sender: FDA-Public Use
  Company Number: None

PATIENT
  Age: 45 Year
  Sex: Male
  Weight: 205.9 kg

DRUGS (2)
  1. PREDNISONE TAB [Suspect]
     Indication: SARCOIDOSIS
     Dosage: 60 MG PO BID
     Route: 048
  2. LUNESTA [Concomitant]

REACTIONS (6)
  - ASTHENIA [None]
  - BLOOD GLUCOSE INCREASED [None]
  - HYPERPHAGIA [None]
  - POLYDIPSIA [None]
  - POLYURIA [None]
  - TACHYCARDIA [None]
